FAERS Safety Report 13742774 (Version 2)
Quarter: 2017Q3

REPORT INFORMATION
  Report Type: Spontaneous
  Country: IT (occurrence: IT)
  Receive Date: 20170711
  Receipt Date: 20170829
  Transmission Date: 20171127
  Serious: Yes (Death, Life-Threatening, Hospitalization)
  Sender: FDA-Public Use
  Company Number: IT-JNJFOC-20170704686

PATIENT
  Age: 74 Year
  Sex: Male

DRUGS (1)
  1. STELARA [Suspect]
     Active Substance: USTEKINUMAB
     Indication: PSORIASIS
     Dosage: CYCLICAL
     Route: 058
     Dates: start: 20160801, end: 20170302

REACTIONS (2)
  - Cholestasis [Unknown]
  - Jaundice [Fatal]

NARRATIVE: CASE EVENT DATE: 20161001
